FAERS Safety Report 7832557-2 (Version None)
Quarter: 2011Q4

REPORT INFORMATION
  Report Type: 
  Country: None (occurrence: None)
  Receive Date: 20111024
  Receipt Date: 20111012
  Transmission Date: 20120403
  Serious: Yes (Hospitalization)
  Sender: FDA-Public Use
  Company Number: US-BIOGENIDEC-2011BI039634

PATIENT
  Age: 45 Year
  Sex: Female

DRUGS (2)
  1. TYSABRI [Suspect]
     Indication: MULTIPLE SCLEROSIS
     Route: 042
     Dates: start: 20091124
  2. CYMBALTA [Concomitant]
     Indication: PRODUCT USED FOR UNKNOWN INDICATION

REACTIONS (9)
  - WEIGHT DECREASED [None]
  - GASTRIC BYPASS [None]
  - LUNG DISORDER [None]
  - SLEEP APNOEA SYNDROME [None]
  - TREMOR [None]
  - PAIN IN EXTREMITY [None]
  - EMOTIONAL DISORDER [None]
  - WEIGHT INCREASED [None]
  - PAIN [None]
